FAERS Safety Report 7775033-8 (Version None)
Quarter: 2011Q3

REPORT INFORMATION
  Report Type: 
  Country: None (occurrence: None)
  Receive Date: 20110923
  Receipt Date: 20110912
  Transmission Date: 20111222
  Serious: Yes (Hospitalization, Other)
  Sender: FDA-Public Use
  Company Number: US-ELI_LILLY_AND_COMPANY-US201109003889

PATIENT
  Age: 41 Year
  Sex: Female
  Weight: 77.1 kg

DRUGS (5)
  1. PROZAC [Suspect]
     Indication: MAJOR DEPRESSION
     Dosage: UNK UNK, UNKNOWN
     Dates: start: 19850101
  2. ZOLOFT [Concomitant]
     Indication: MAJOR DEPRESSION
     Dosage: 100 MG, QD
     Route: 048
     Dates: start: 19950101
  3. IBUPROFEN [Concomitant]
     Indication: ANTIINFLAMMATORY THERAPY
     Dosage: 800 MG, PRN
  4. ZOLOFT [Concomitant]
     Dosage: 150 MG, QD
     Route: 048
     Dates: start: 19980101
  5. ELAVIL [Concomitant]
     Indication: MAJOR DEPRESSION
     Dosage: UNK
     Dates: start: 19950101, end: 19980101

REACTIONS (6)
  - MAJOR DEPRESSION [None]
  - OFF LABEL USE [None]
  - FIBROMYALGIA [None]
  - HYPERSENSITIVITY [None]
  - SUICIDAL IDEATION [None]
  - ADVERSE EVENT [None]
